FAERS Safety Report 22602691 (Version 1)
Quarter: 2023Q2

REPORT INFORMATION
  Report Type: Spontaneous
  Country: CN (occurrence: CN)
  Receive Date: 20230615
  Receipt Date: 20230615
  Transmission Date: 20230722
  Serious: Yes (Hospitalization)
  Sender: FDA-Public Use
  Company Number: CN-ABBVIE-5288319

PATIENT
  Age: 65 Year
  Sex: Male
  Weight: 49 kg

DRUGS (4)
  1. VENETOCLAX [Suspect]
     Active Substance: VENETOCLAX
     Indication: Targeted cancer therapy
     Route: 048
     Dates: start: 20230530, end: 20230530
  2. VENETOCLAX [Suspect]
     Active Substance: VENETOCLAX
     Indication: Targeted cancer therapy
     Route: 048
     Dates: start: 20230604
  3. VENETOCLAX [Suspect]
     Active Substance: VENETOCLAX
     Indication: Targeted cancer therapy
     Route: 048
     Dates: start: 20230601, end: 20230601
  4. VENETOCLAX [Suspect]
     Active Substance: VENETOCLAX
     Indication: Targeted cancer therapy
     Route: 048
     Dates: start: 20230531, end: 20230531

REACTIONS (2)
  - Myelosuppression [Recovering/Resolving]
  - Pruritus [Recovering/Resolving]

NARRATIVE: CASE EVENT DATE: 20230530
